FAERS Safety Report 17823965 (Version 10)
Quarter: 2020Q4

REPORT INFORMATION
  Report Type: Report from Study
  Country: FR (occurrence: FR)
  Receive Date: 20200526
  Receipt Date: 20201123
  Transmission Date: 20210113
  Serious: Yes (Other)
  Sender: FDA-Public Use
  Company Number: FR-ROCHE-2606579

PATIENT
  Age: 50 Year
  Sex: Male

DRUGS (13)
  1. TEICOPLANINE [Concomitant]
     Active Substance: TEICOPLANIN
  2. PROPOFOL. [Concomitant]
     Active Substance: PROPOFOL
  3. CIFLOX (FRANCE) [Concomitant]
     Active Substance: CIPROFLOXACIN
  4. CASPOFUNGIN [Concomitant]
     Active Substance: CASPOFUNGIN
  5. COLISTINE [Concomitant]
     Active Substance: COLISTIN
  6. MACROGOL [Concomitant]
     Active Substance: POLYETHYLENE GLYCOLS
  7. TOCILIZUMAB. [Suspect]
     Active Substance: TOCILIZUMAB
     Indication: CORONAVIRUS INFECTION
     Route: 042
     Dates: start: 20200406, end: 20200406
  8. MEROPENEM. [Concomitant]
     Active Substance: MEROPENEM
  9. TOCILIZUMAB. [Suspect]
     Active Substance: TOCILIZUMAB
     Route: 042
     Dates: start: 20200408, end: 20200408
  10. HEPARIN [Concomitant]
     Active Substance: HEPARIN SODIUM
  11. FORLAX [Concomitant]
     Active Substance: POLYETHYLENE GLYCOL 4000
  12. PRIMPERAN [Concomitant]
     Active Substance: METOCLOPRAMIDE HYDROCHLORIDE
  13. METOCLOPRAMIDE. [Concomitant]
     Active Substance: METOCLOPRAMIDE

REACTIONS (20)
  - Pneumonia bacterial [Recovered/Resolved]
  - Cell death [Recovered/Resolved]
  - Blood creatine phosphokinase increased [Recovered/Resolved]
  - Pseudomonas infection [Recovered/Resolved with Sequelae]
  - Liver function test abnormal [Not Recovered/Not Resolved]
  - Device related infection [Recovered/Resolved with Sequelae]
  - Vena cava thrombosis [Not Recovered/Not Resolved]
  - Pancreatitis acute [Recovered/Resolved with Sequelae]
  - Rhabdomyolysis [Recovered/Resolved]
  - Staphylococcal infection [Recovered/Resolved with Sequelae]
  - Alanine aminotransferase increased [Recovered/Resolved]
  - Septic shock [Recovered/Resolved]
  - Pseudomonal sepsis [Recovered/Resolved]
  - Enterococcal bacteraemia [Recovered/Resolved]
  - Blood alkaline phosphatase increased [Not Recovered/Not Resolved]
  - Blood bilirubin increased [Not Recovered/Not Resolved]
  - Aspartate aminotransferase increased [Recovered/Resolved]
  - Pneumonia pseudomonal [Recovered/Resolved]
  - Gamma-glutamyltransferase increased [Not Recovered/Not Resolved]
  - Cholangitis [Not Recovered/Not Resolved]

NARRATIVE: CASE EVENT DATE: 20200406
